FAERS Safety Report 6404891-4 (Version None)
Quarter: 2009Q4

REPORT INFORMATION
  Report Type: 
  Country: None (occurrence: None)
  Receive Date: 20091019
  Receipt Date: 20091013
  Transmission Date: 20100525
  Serious: Yes (Other)
  Sender: FDA-Public Use
  Company Number: US-TEVA-207985USA

PATIENT
  Sex: Female

DRUGS (2)
  1. CLARAVIS [Suspect]
     Indication: SWEAT GLAND INFECTION
     Route: 048
     Dates: start: 20081020, end: 20090501
  2. CLARAVIS [Suspect]
     Indication: ACNE

REACTIONS (1)
  - UNINTENDED PREGNANCY [None]
